FAERS Safety Report 8394814 (Version 3)
Quarter: 2012Q4

REPORT INFORMATION
  Report Type: 
  Country: US (occurrence: US)
  Receive Date: 20120207
  Receipt Date: 20120926
  Transmission Date: 20130627
  Serious: Yes (Hospitalization, Other)
  Sender: FDA-Public Use
  Company Number: US-BAYER-2012-009554

PATIENT
  Age: 38 Year
  Sex: Female
  Weight: 94.33 kg

DRUGS (5)
  1. YASMIN [Suspect]
     Indication: CONTRACEPTION
     Dosage: UNK
     Dates: start: 200404, end: 200809
  2. OCELLA [Suspect]
     Indication: CONTRACEPTION
     Dosage: UNK
     Dates: start: 200810, end: 200912
  3. METFORMIN [Concomitant]
     Indication: POLYCYSTIC OVARIES
     Dosage: UNK
     Dates: start: 2001
  4. LORTAB [Concomitant]
     Indication: PAIN
     Dosage: 1 tablet every 4 hours, PRN
     Route: 048
  5. PROMETHAZINE [Concomitant]
     Indication: NAUSEA
     Dosage: 12.5 mg, every 6 hours
     Route: 048

REACTIONS (8)
  - Cholelithiasis [None]
  - Pain [None]
  - Abdominal pain [None]
  - Incisional hernia [None]
  - Emotional distress [None]
  - Anxiety [None]
  - General physical health deterioration [None]
  - General physical health deterioration [None]
